FAERS Safety Report 9629246 (Version 3)
Quarter: 2014Q2

REPORT INFORMATION
  Report Type: Spontaneous
  Country: TR (occurrence: TR)
  Receive Date: 20131017
  Receipt Date: 20140625
  Transmission Date: 20141212
  Serious: Yes (Hospitalization)
  Sender: FDA-Public Use
  Company Number: TR-BAYER-2013-121754

PATIENT
  Age: 59 Year
  Sex: Male
  Weight: 75 kg

DRUGS (2)
  1. NEXAVAR [Suspect]
     Indication: HEPATIC MASS
     Dosage: 2 X 2 FREQUENCY
     Dates: start: 2012
  2. NEXAVAR [Suspect]
     Indication: HEPATIC CIRRHOSIS
     Dosage: UNK

REACTIONS (3)
  - Fatigue [Recovered/Resolved]
  - Myalgia [Recovered/Resolved]
  - Hospitalisation [None]
